FAERS Safety Report 6736745-8 (Version None)
Quarter: 2010Q2

REPORT INFORMATION
  Report Type: 
  Country: None (occurrence: None)
  Receive Date: 20100521
  Receipt Date: 20100512
  Transmission Date: 20101027
  Serious: Yes (Hospitalization, Congenital Anomaly, Other)
  Sender: FDA-Public Use
  Company Number: IN-ABBOTT-10P-078-0644894-00

PATIENT
  Age: 2 Month
  Sex: Male

DRUGS (1)
  1. VALPROATE SODIUM [Suspect]
     Indication: DRUG EXPOSURE DURING PREGNANCY
     Route: 064

REACTIONS (13)
  - CLEFT PALATE [None]
  - CONGENITAL FOOT MALFORMATION [None]
  - CONGENITAL HAND MALFORMATION [None]
  - CONGENITAL INGUINAL HERNIA [None]
  - CONGENITAL NOSE MALFORMATION [None]
  - CONGENITAL PULMONARY HYPERTENSION [None]
  - CUTIS LAXA [None]
  - DRUG EXPOSURE DURING PREGNANCY [None]
  - DRUG EXPOSURE VIA BREAST MILK [None]
  - DYSMORPHISM [None]
  - FOETAL ANTICONVULSANT SYNDROME [None]
  - LOW SET EARS [None]
  - PERSISTENT LEFT SUPERIOR VENA CAVA [None]
